FAERS Safety Report 10020922 (Version 1)
Quarter: 2014Q1

REPORT INFORMATION
  Report Type: Spontaneous
  Country: FR (occurrence: FR)
  Receive Date: 20140319
  Receipt Date: 20140319
  Transmission Date: 20141002
  Serious: Yes (Hospitalization)
  Sender: FDA-Public Use
  Company Number: FR-ACCORD-022593

PATIENT
  Age: 32 Year
  Sex: Male

DRUGS (10)
  1. FLUOROURACIL [Suspect]
     Indication: ADENOCARCINOMA GASTRIC
     Dosage: FOR 48 HOURS.
     Route: 042
     Dates: start: 20140117
  2. OXALIPLATIN [Suspect]
     Indication: ADENOCARCINOMA GASTRIC
     Dosage: SINGLE INTAKE PER COURSE
     Route: 042
     Dates: start: 20140117, end: 20140117
  3. ANAFRANIL [Concomitant]
  4. ZOPHREN [Concomitant]
     Indication: PREMEDICATION
     Route: 042
     Dates: start: 20140117, end: 20140117
  5. EMEND [Concomitant]
     Indication: PREMEDICATION
     Dates: start: 20140117, end: 20140117
  6. NEURONTIN [Concomitant]
  7. VOGALENE [Concomitant]
     Indication: PREMEDICATION
     Dates: start: 20140117, end: 20140117
  8. METHYLPREDNISOLONE [Concomitant]
     Indication: PREMEDICATION
     Dates: start: 20140114, end: 20140116
  9. SOLUPRED [Concomitant]
     Indication: PREMEDICATION
     Dates: start: 20140117, end: 20140117
  10. INEXIUM [Concomitant]

REACTIONS (7)
  - Hot flush [Recovered/Resolved]
  - Rash [Recovered/Resolved]
  - Nausea [Recovered/Resolved]
  - Syncope [Recovered/Resolved]
  - Dyspnoea [Recovered/Resolved]
  - Chest discomfort [Recovered/Resolved]
  - Infusion related reaction [Recovered/Resolved]
